FAERS Safety Report 23740052 (Version 1)
Quarter: 2024Q2

REPORT INFORMATION
  Report Type: Spontaneous
  Country: CA (occurrence: CA)
  Receive Date: 20240414
  Receipt Date: 20240414
  Transmission Date: 20240716
  Serious: Yes (Other)
  Sender: FDA-Public Use
  Company Number: CA-TEVA-VS-3181492

PATIENT
  Sex: Male

DRUGS (3)
  1. PEMETREXED [Suspect]
     Active Substance: PEMETREXED
     Indication: Lung neoplasm malignant
     Dosage: DOSE FORM: POWDER FOR SOLUTION INTRAVENOUS
     Route: 042
  2. CARBOPLATIN [Suspect]
     Active Substance: CARBOPLATIN
     Indication: Lung neoplasm malignant
     Dosage: DOSE FORM: SOLUTION INTRAVENOUS
     Route: 042
  3. KEYTRUDA [Suspect]
     Active Substance: PEMBROLIZUMAB
     Indication: Lung neoplasm malignant
     Route: 065

REACTIONS (1)
  - Pneumonitis [Not Recovered/Not Resolved]
